FAERS Safety Report 5790500-4 (Version None)
Quarter: 2008Q2

REPORT INFORMATION
  Report Type: 
  Country: None (occurrence: None)
  Receive Date: 20080626
  Receipt Date: 20080429
  Transmission Date: 20081010
  Serious: No
  Sender: FDA-Public Use
  Company Number: A0725322A

PATIENT
  Age: 34 Year
  Sex: Female
  Weight: 79 kg

DRUGS (1)
  1. ALLI [Suspect]
     Indication: DRUG USE FOR UNKNOWN INDICATION

REACTIONS (5)
  - ANORECTAL DISCOMFORT [None]
  - FREQUENT BOWEL MOVEMENTS [None]
  - MENORRHAGIA [None]
  - MENSTRUATION IRREGULAR [None]
  - PHARMACEUTICAL PRODUCT COMPLAINT [None]
